FAERS Safety Report 23941167 (Version 1)
Quarter: 2024Q2

REPORT INFORMATION
  Report Type: Spontaneous
  Country: CN (occurrence: CN)
  Receive Date: 20240605
  Receipt Date: 20240605
  Transmission Date: 20240716
  Serious: Yes (Hospitalization, Other)
  Sender: FDA-Public Use
  Company Number: CN-PFIZER INC-PV202400072840

PATIENT
  Age: 61 Year
  Sex: Male
  Weight: 84 kg

DRUGS (1)
  1. LORBRENA [Suspect]
     Active Substance: LORLATINIB
     Indication: Metastatic neoplasm
     Dosage: 100 MG, 1X/DAY
     Route: 048
     Dates: start: 20230324, end: 20240529

REACTIONS (1)
  - Blood glucose increased [Recovering/Resolving]
